FAERS Safety Report 6471751-2 (Version None)
Quarter: 2009Q4

REPORT INFORMATION
  Report Type: 
  Country: None (occurrence: None)
  Receive Date: 20091203
  Receipt Date: 20090608
  Transmission Date: 20100525
  Serious: Yes (Death, Other)
  Sender: FDA-Public Use
  Company Number: US-ELI_LILLY_AND_COMPANY-US200803003488

PATIENT
  Sex: Female
  Weight: 62.585 kg

DRUGS (6)
  1. ZYPREXA [Suspect]
     Dosage: 5 MG, UNK
     Dates: start: 19960101, end: 20040101
  2. ZYPREXA [Suspect]
     Dosage: 5 MG, UNK
     Dates: start: 20070101
  3. ZYPREXA [Suspect]
     Dosage: UNK, UNKNOWN
     Dates: start: 20000227, end: 20070301
  4. RISPERIDONE [Concomitant]
     Dosage: UNK, UNKNOWN
     Dates: start: 19971101, end: 20000227
  5. ANAFRANIL [Concomitant]
     Dosage: UNK, UNKNOWN
     Dates: start: 19980201, end: 20050701
  6. ZOLOFT [Concomitant]
     Dosage: UNK, UNKNOWN
     Dates: start: 19971001, end: 19971101

REACTIONS (4)
  - DEATH [None]
  - DIABETES MELLITUS [None]
  - HYPERGLYCAEMIA [None]
  - NEOPLASM [None]
